FAERS Safety Report 6721549-2 (Version None)
Quarter: 2010Q2

REPORT INFORMATION
  Report Type: 
  Country: None (occurrence: None)
  Receive Date: 20100510
  Receipt Date: 20100426
  Transmission Date: 20101027
  Serious: Yes (Life-Threatening, Hospitalization)
  Sender: FDA-Public Use
  Company Number: 009118

PATIENT
  Sex: Female
  Weight: 60 kg

DRUGS (3)
  1. LACOSAMIDE [Suspect]
     Indication: EPILEPSY
     Dates: start: 20100101
  2. LEVETIRACETAM [Suspect]
     Indication: EPILEPSY
     Dosage: (3 G, ORAL)
     Route: 048
     Dates: start: 20100108
  3. PHENYTOIN [Suspect]
     Indication: EPILEPSY
     Dosage: (500 MG, INTRAVENOUS (NOT OTHERWISE SPECIFIED)
     Route: 042
     Dates: start: 20100110

REACTIONS (1)
  - EOSINOPHILIA [None]
